FAERS Safety Report 5599720-5 (Version None)
Quarter: 2008Q1

REPORT INFORMATION
  Report Type: 
  Country: None (occurrence: None)
  Receive Date: 20080118
  Receipt Date: 20080118
  Transmission Date: 20080703
  Serious: Yes (Hospitalization)
  Sender: FDA-Public Use
  Company Number: None

PATIENT
  Age: 66 Year
  Sex: Male
  Weight: 84 kg

DRUGS (7)
  1. WARFARIN SODIUM [Suspect]
     Indication: PULMONARY EMBOLISM
     Dosage: 5MG PO QD
     Route: 048
     Dates: start: 20071122
  2. FERROUS SULFATE [Concomitant]
  3. SIMVASTATIN [Concomitant]
  4. HYDROMORPHONE HCL [Concomitant]
  5. ISOSORBIDE DINITRATE [Concomitant]
  6. ENALAPRIL [Concomitant]
  7. EZETIMIBE [Concomitant]

REACTIONS (4)
  - CONTUSION [None]
  - EAR HAEMORRHAGE [None]
  - ECCHYMOSIS [None]
  - INTERNATIONAL NORMALISED RATIO INCREASED [None]
